FAERS Safety Report 24584582 (Version 1)
Quarter: 2024Q4

REPORT INFORMATION
  Report Type: Spontaneous
  Country: ES (occurrence: ES)
  Receive Date: 20241106
  Receipt Date: 20241106
  Transmission Date: 20250115
  Serious: Yes (Hospitalization)
  Sender: PFIZER
  Company Number: ES-ROCHE-3514986

PATIENT
  Age: 62 Year
  Sex: Male
  Weight: 83.6 kg

DRUGS (55)
  1. DOXORUBICIN HYDROCHLORIDE [Suspect]
     Active Substance: DOXORUBICIN HYDROCHLORIDE
     Indication: Diffuse large B-cell lymphoma
     Dosage: ON 13FEB2024 HE RECEIVED MOST RECENT DOSE OF STUDY DRUG (98 MG) PRIOR TO AE/SAE
     Route: 042
     Dates: start: 20240124
  2. GLOFITAMAB [Suspect]
     Active Substance: GLOFITAMAB
     Indication: Diffuse large B-cell lymphoma
     Dosage: 2.5 MG, WEEKLY
     Route: 042
     Dates: start: 20240220
  3. CYCLOPHOSPHAMIDE [Suspect]
     Active Substance: CYCLOPHOSPHAMIDE
     Indication: Diffuse large B-cell lymphoma
     Dosage: ON 13FEB2024 HE RECEIVED MOST RECENT DOSE OF STUDY DRUG (1470 MG) PRIOR TO AE/SAE
     Route: 042
     Dates: start: 20240124
  4. PREDNISONE [Suspect]
     Active Substance: PREDNISONE
     Indication: Diffuse large B-cell lymphoma
     Dosage: ON 17FEB2024 HE RECEIVED MOST RECENT DOSE OF STUDY DRUG (100 MG) PRIOR TO AE/SAE
     Route: 048
     Dates: start: 20240124
  5. POLATUZUMAB VEDOTIN [Concomitant]
     Active Substance: POLATUZUMAB VEDOTIN
     Indication: Diffuse large B-cell lymphoma
     Dosage: *INFUSION/ON 13FEB2024 HE RECEIVED MOST RECENT DOSE OF STUDY DRUG (140 MG) PRIOR TO AE/SAE.
     Route: 042
     Dates: start: 20240124
  6. RITUXIMAB [Concomitant]
     Active Substance: RITUXIMAB
     Indication: Diffuse large B-cell lymphoma
     Dosage: 735 MG, EVERY 3 WEEKS
     Route: 042
     Dates: start: 20240124
  7. ROSUVASTATIN [Concomitant]
     Active Substance: ROSUVASTATIN
     Dosage: 1 DF, 1X/DAY
     Route: 048
  8. PREDNISONE [Concomitant]
     Active Substance: PREDNISONE
     Dosage: UNK
     Route: 048
     Dates: start: 20240118
  9. PREDNISONE [Concomitant]
     Active Substance: PREDNISONE
     Dosage: 100 MG, 1X/DAY
     Route: 048
     Dates: start: 20240124, end: 20240128
  10. OMEPRAZOLE [Concomitant]
     Active Substance: OMEPRAZOLE
     Dosage: FREQ:.5 D;
     Route: 048
     Dates: start: 20240124
  11. ALLOPURINOL [Concomitant]
     Active Substance: ALLOPURINOL
     Dosage: 300 MG, 1X/DAY
     Route: 048
     Dates: start: 20240126
  12. LORAZEPAM [Concomitant]
     Active Substance: LORAZEPAM
     Dosage: 2 MG, 1X/DAY
     Route: 048
     Dates: start: 20240124
  13. HIBOR [Concomitant]
     Dosage: 3500 IU, 1X/DAY
     Route: 058
     Dates: start: 20240124, end: 20240213
  14. ACYCLOVIR [Concomitant]
     Active Substance: ACYCLOVIR
     Dosage: 800 MG, 1X/DAY
     Route: 048
     Dates: start: 20240124
  15. SULFAMETHOXAZOLE\TRIMETHOPRIM [Concomitant]
     Active Substance: SULFAMETHOXAZOLE\TRIMETHOPRIM
     Dosage: FREQ:.33 WK;
     Route: 048
     Dates: start: 20240124
  16. ACETAMINOPHEN [Concomitant]
     Active Substance: ACETAMINOPHEN
     Indication: Cytokine release syndrome
     Dosage: 1000 MG
     Route: 042
     Dates: start: 20240124, end: 20240124
  17. ACETAMINOPHEN [Concomitant]
     Active Substance: ACETAMINOPHEN
     Indication: Premedication
     Dosage: 1000 MG, AS NEEDED
     Route: 048
     Dates: start: 20240124
  18. ACETAMINOPHEN [Concomitant]
     Active Substance: ACETAMINOPHEN
     Dosage: 1000 MG, SINGLE
     Route: 042
     Dates: start: 20240213, end: 20240213
  19. ACETAMINOPHEN [Concomitant]
     Active Substance: ACETAMINOPHEN
     Dosage: 1000 MG
     Route: 042
     Dates: start: 20240220, end: 20240220
  20. ACETAMINOPHEN [Concomitant]
     Active Substance: ACETAMINOPHEN
     Dosage: FREQ:.33 D;
     Route: 042
     Dates: start: 20240220
  21. ACETAMINOPHEN [Concomitant]
     Active Substance: ACETAMINOPHEN
     Dosage: 1000 MG
     Route: 042
     Dates: start: 20240227, end: 20240227
  22. ACETAMINOPHEN [Concomitant]
     Active Substance: ACETAMINOPHEN
     Dosage: 1000 MG
     Route: 042
     Dates: start: 20240305, end: 20240305
  23. ACETAMINOPHEN [Concomitant]
     Active Substance: ACETAMINOPHEN
     Dosage: 1000 MG
     Route: 042
     Dates: start: 20240423, end: 20240423
  24. ACETAMINOPHEN [Concomitant]
     Active Substance: ACETAMINOPHEN
     Dosage: 1000 MG
     Route: 042
     Dates: start: 20240506, end: 20240506
  25. PRIMPERAN [Concomitant]
     Active Substance: METOCLOPRAMIDE HYDROCHLORIDE
     Dosage: 10 MG, AS NEEDED
     Route: 048
     Dates: start: 20240124
  26. PRIMPERAN [Concomitant]
     Active Substance: METOCLOPRAMIDE HYDROCHLORIDE
     Dosage: 5 MG
     Route: 042
     Dates: start: 20240227, end: 20240227
  27. PRIMPERAN [Concomitant]
     Active Substance: METOCLOPRAMIDE HYDROCHLORIDE
     Dosage: 5 MG
     Route: 042
     Dates: start: 20240305, end: 20240305
  28. ONDANSETRON [Concomitant]
     Active Substance: ONDANSETRON
     Indication: Premedication
     Dosage: 8 MG, AS NEEDED
     Route: 048
     Dates: start: 20240124
  29. ONDANSETRON [Concomitant]
     Active Substance: ONDANSETRON
     Dosage: 8 MG
     Route: 042
     Dates: start: 20240124, end: 20240124
  30. ONDANSETRON [Concomitant]
     Active Substance: ONDANSETRON
     Dosage: 8 MG
     Route: 042
     Dates: start: 20240213, end: 20240213
  31. ONDANSETRON [Concomitant]
     Active Substance: ONDANSETRON
     Dosage: 8 MG
     Route: 042
     Dates: start: 20240227, end: 20240227
  32. ONDANSETRON [Concomitant]
     Active Substance: ONDANSETRON
     Dosage: 8 MG
     Route: 042
     Dates: start: 20240305, end: 20240305
  33. ONDANSETRON [Concomitant]
     Active Substance: ONDANSETRON
     Dosage: 8 MG
     Route: 042
     Dates: start: 20240506, end: 20240506
  34. NEULASTA [Concomitant]
     Active Substance: PEGFILGRASTIM
     Dosage: 1 AMPULE
     Route: 058
     Dates: start: 20240125, end: 20240125
  35. NEULASTA [Concomitant]
     Active Substance: PEGFILGRASTIM
     Dosage: 0.6 ML
     Route: 058
     Dates: start: 20240506, end: 20240506
  36. RASBURICASA [Concomitant]
     Dosage: 15 MG
     Route: 058
     Dates: start: 20240124, end: 20240124
  37. POLARAMINE [Concomitant]
     Active Substance: DEXCHLORPHENIRAMINE MALEATE
     Dosage: 27FEB2024 TO 27FEB2024 05MAR2024 TO 05MAR2024 20FEB2024 TO 20FEB2024 (AS REPORTED)
     Route: 042
     Dates: start: 20240124, end: 20240124
  38. POLARAMINE [Concomitant]
     Active Substance: DEXCHLORPHENIRAMINE MALEATE
     Dosage: 27FEB2024 TO 27FEB2024 05MAR2024 TO 05MAR2024 20FEB2024 TO 20FEB2024 (AS REPORTED)
     Route: 042
     Dates: start: 20240213, end: 20240213
  39. POLARAMINE [Concomitant]
     Active Substance: DEXCHLORPHENIRAMINE MALEATE
     Dosage: 27FEB2024 TO 27FEB2024 05MAR2024 TO 05MAR2024 20FEB2024 TO 20FEB2024 (AS REPORTED)
     Route: 042
     Dates: start: 20240220, end: 20240220
  40. POLARAMINE [Concomitant]
     Active Substance: DEXCHLORPHENIRAMINE MALEATE
     Dosage: 27FEB2024 TO 27FEB2024 05MAR2024 TO 05MAR2024 20FEB2024 TO 20FEB2024 (AS REPORTED)
     Route: 042
     Dates: start: 20240227, end: 20240227
  41. POLARAMINE [Concomitant]
     Active Substance: DEXCHLORPHENIRAMINE MALEATE
     Dosage: 5 MG
     Dates: start: 20240423, end: 20240423
  42. POLARAMINE [Concomitant]
     Active Substance: DEXCHLORPHENIRAMINE MALEATE
     Dosage: 5 MG
     Route: 042
     Dates: start: 20240506, end: 20240506
  43. DEXAMETHASONE [Concomitant]
     Active Substance: DEXAMETHASONE
     Dosage: 20FEB2024 TO 20FEB2024 27FEB2024 TO 27FEB2024 (AS REPORTED)
     Route: 042
     Dates: start: 20240124, end: 20240124
  44. DEXAMETHASONE [Concomitant]
     Active Substance: DEXAMETHASONE
     Dosage: 20 MG
     Route: 042
     Dates: start: 20240220, end: 20240220
  45. DEXAMETHASONE [Concomitant]
     Active Substance: DEXAMETHASONE
     Dosage: FREQ:.25 D;
     Route: 042
     Dates: start: 20240221, end: 20240222
  46. DEXAMETHASONE [Concomitant]
     Active Substance: DEXAMETHASONE
     Dosage: FREQ:.25 D;
     Route: 042
     Dates: start: 20240402, end: 20240402
  47. METAMIZOL [Concomitant]
     Active Substance: METAMIZOLE SODIUM
     Dosage: 2 G, 1X/DAY
     Route: 042
     Dates: start: 20240124, end: 20240125
  48. METAMIZOL [Concomitant]
     Active Substance: METAMIZOLE SODIUM
     Dosage: 2 G
     Route: 042
     Dates: start: 20240213
  49. PEGFILGRASTIM [Concomitant]
     Active Substance: PEGFILGRASTIM
     Dosage: 6 MG
     Route: 058
     Dates: start: 20240213, end: 20240213
  50. PEGFILGRASTIM [Concomitant]
     Active Substance: PEGFILGRASTIM
     Dosage: 6 MG
     Route: 058
     Dates: start: 20240313, end: 20240313
  51. METOCOLPRAMIDE [Concomitant]
     Indication: Premedication
     Dosage: 10 MG
     Route: 042
     Dates: start: 20240227, end: 20240227
  52. FAMOTIDINE [Concomitant]
     Active Substance: FAMOTIDINE
     Indication: Premedication
     Dosage: 40 MG, SINGLE
     Route: 048
     Dates: start: 20240213, end: 20240213
  53. FAMOTIDINE [Concomitant]
     Active Substance: FAMOTIDINE
     Dosage: 4 MG
     Route: 048
     Dates: start: 20240305, end: 20240305
  54. DEXKETOPROFEN TROMETAMOL [Concomitant]
     Active Substance: DEXKETOPROFEN TROMETAMOL
     Indication: Premedication
     Dosage: 50 MG
     Route: 042
     Dates: start: 20240305, end: 20240305
  55. HYDROCORTISONE SODIUM PHOSPHATE [Concomitant]
     Active Substance: HYDROCORTISONE SODIUM PHOSPHATE
     Indication: Infusion related reaction
     Dosage: 100 MG
     Route: 042
     Dates: start: 20240313, end: 20240313

REACTIONS (1)
  - Cytokine release syndrome [Recovered/Resolved]

NARRATIVE: CASE EVENT DATE: 20240220
